FAERS Safety Report 16744317 (Version 1)
Quarter: 2019Q3

REPORT INFORMATION
  Report Type: Spontaneous
  Country: US (occurrence: US)
  Receive Date: 20190827
  Receipt Date: 20190827
  Transmission Date: 20191005
  Serious: Yes (Hospitalization)
  Sender: FDA-Public Use
  Company Number: US-TEVA-2019-US-1098437

PATIENT
  Sex: Male
  Weight: 52 kg

DRUGS (4)
  1. DEPAKOTE [Concomitant]
     Active Substance: DIVALPROEX SODIUM
  2. RISPERIDONE. [Concomitant]
     Active Substance: RISPERIDONE
  3. CLOZAPINE TEVA [Suspect]
     Active Substance: CLOZAPINE
     Indication: SCHIZOAFFECTIVE DISORDER
     Route: 065
  4. DOSTINEX [Concomitant]
     Active Substance: CABERGOLINE

REACTIONS (1)
  - Renal failure [Unknown]
